FAERS Safety Report 5071038-9 (Version None)
Quarter: 2006Q3

REPORT INFORMATION
  Report Type: 
  Country: None (occurrence: None)
  Receive Date: 20060804
  Receipt Date: 20060105
  Transmission Date: 20061208
  Serious: Yes (Other)
  Sender: FDA-Public Use
  Company Number: US-GLAXOSMITHKLINE-A0587880A

PATIENT
  Age: 53 Year
  Sex: Female

DRUGS (1)
  1. NICORETTE [Suspect]
     Dosage: 4MG UNKNOWN

REACTIONS (4)
  - DRUG ABUSER [None]
  - LEUKOPLAKIA [None]
  - ORAL SOFT TISSUE DISORDER [None]
  - STOMATITIS [None]
